FAERS Safety Report 24466717 (Version 1)
Quarter: 2024Q4

REPORT INFORMATION
  Report Type: Report from Study
  Country: US (occurrence: US)
  Receive Date: 20241018
  Receipt Date: 20241018
  Transmission Date: 20250115
  Serious: No
  Sender: ROCHE
  Company Number: US-ROCHE-3552648

PATIENT
  Age: 69 Year
  Sex: Male
  Weight: 110.0 kg

DRUGS (19)
  1. XOLAIR [Suspect]
     Active Substance: OMALIZUMAB
     Indication: Asthma
     Dosage: GETS IN ARM
     Route: 058
     Dates: start: 20240417
  2. XOLAIR [Suspect]
     Active Substance: OMALIZUMAB
  3. AMOXICILLIN [Suspect]
     Active Substance: AMOXICILLIN
     Indication: Product used for unknown indication
     Route: 065
     Dates: start: 20240320
  4. POTASSIUM [Concomitant]
     Active Substance: POTASSIUM
  5. CALCIUM [Concomitant]
     Active Substance: CALCIUM
  6. PREDNISONE [Concomitant]
     Active Substance: PREDNISONE
  7. TRELEGY ELLIPTA [Concomitant]
     Active Substance: FLUTICASONE FUROATE\UMECLIDINIUM BROMIDE\VILANTEROL TRIFENATATE
  8. PANTOPRAZOLE [Concomitant]
     Active Substance: PANTOPRAZOLE
     Dosage: EVERY MORNING
  9. ELIQUIS [Concomitant]
     Active Substance: APIXABAN
     Dosage: 1 IN MORNING AND 1 IN EVENING
  10. DILTIAZEM ER 24HR [Concomitant]
     Dosage: 1 IN MORNING AND 1 IN EVENING
  11. ONDANSETRON [Concomitant]
     Active Substance: ONDANSETRON
  12. ALPRAZOLAM [Concomitant]
     Active Substance: ALPRAZOLAM
     Indication: Feeling of relaxation
  13. AZELASTINE [Concomitant]
     Active Substance: AZELASTINE
     Route: 045
  14. ALBUTEROL SULFATE [Concomitant]
     Active Substance: ALBUTEROL SULFATE
  15. NYSTATIN [Concomitant]
     Active Substance: NYSTATIN
     Dosage: RINSE IN MOUTH AS NEEDED
     Route: 048
  16. MAGNESIUM CHLORIDE\MAGNESIUM GLUCONATE [Concomitant]
     Active Substance: MAGNESIUM CHLORIDE\MAGNESIUM GLUCONATE
  17. BUDESONIDE [Concomitant]
     Active Substance: BUDESONIDE
     Dosage: 0.5MG/2ML
     Route: 055
  18. GABAPENTIN [Concomitant]
     Active Substance: GABAPENTIN
     Dosage: IN THE EVENING
  19. HYDROXYZINE [Concomitant]
     Active Substance: HYDROXYZINE HYDROCHLORIDE
     Dosage: DOES NOT USE VERY OFTEN

REACTIONS (6)
  - Decreased appetite [Recovered/Resolved]
  - Abdominal pain upper [Not Recovered/Not Resolved]
  - Diarrhoea [Recovered/Resolved]
  - Vomiting [Recovered/Resolved]
  - Dehydration [Recovered/Resolved]
  - Memory impairment [Unknown]

NARRATIVE: CASE EVENT DATE: 20240418
